FAERS Safety Report 8136896-X (Version None)
Quarter: 2012Q1

REPORT INFORMATION
  Report Type: 
  Country: None (occurrence: None)
  Receive Date: 20120214
  Receipt Date: 20120210
  Transmission Date: 20120608
  Serious: Yes (Other)
  Sender: FDA-Public Use
  Company Number: PHEH2012US000807

PATIENT
  Sex: Female

DRUGS (5)
  1. ZYRTEC [Concomitant]
  2. CELEXA [Concomitant]
  3. ALBUTEROL [Concomitant]
  4. GILENYA [Suspect]
     Indication: MULTIPLE SCLEROSIS
     Dosage: 0.5 MG, QD
     Route: 048
     Dates: start: 20111007, end: 20120119
  5. LYRICA [Concomitant]

REACTIONS (3)
  - ASTHMA [None]
  - BRONCHITIS [None]
  - DYSPNOEA [None]
